FAERS Safety Report 21322467 (Version 3)
Quarter: 2022Q3

REPORT INFORMATION
  Report Type: Spontaneous
  Country: DE (occurrence: DE)
  Receive Date: 20220912
  Receipt Date: 20220922
  Transmission Date: 20221027
  Serious: Yes (Hospitalization, Other)
  Sender: FDA-Public Use
  Company Number: DE-002147023-NVSC2022DE203493

PATIENT

DRUGS (2)
  1. DICLOFENAC DIETHYLAMINE [Suspect]
     Active Substance: DICLOFENAC DIETHYLAMINE
     Indication: Pain
     Dosage: UNK
     Route: 065
  2. PANCRELIPASE [Suspect]
     Active Substance: PANCRELIPASE
     Indication: Eating disorder
     Dosage: UNK
     Route: 065
     Dates: start: 2022

REACTIONS (7)
  - Autoimmune disorder [Not Recovered/Not Resolved]
  - Gastric cancer [Unknown]
  - Contusion [Unknown]
  - Asthenia [Not Recovered/Not Resolved]
  - Blood potassium decreased [Unknown]
  - Platelet count decreased [Unknown]
  - Eating disorder [Recovering/Resolving]

NARRATIVE: CASE EVENT DATE: 20220101
